FAERS Safety Report 26054802 (Version 1)
Quarter: 2025Q4

REPORT INFORMATION
  Report Type: Spontaneous
  Country: EU (occurrence: EU)
  Receive Date: 20251117
  Receipt Date: 20251117
  Transmission Date: 20260118
  Serious: Yes (Hospitalization)
  Sender: GUERBET
  Company Number: None

PATIENT
  Age: 59 Year
  Sex: Female
  Weight: 69 kg

DRUGS (2)
  1. IOVERSOL [Suspect]
     Active Substance: IOVERSOL
     Indication: Angiocardiogram
     Dates: start: 202508, end: 202508
  2. PIPERACILLIN SODIUM\TAZOBACTAM SODIUM [Suspect]
     Active Substance: PIPERACILLIN SODIUM\TAZOBACTAM SODIUM
     Indication: Pyrexia
     Route: 042
     Dates: start: 202508, end: 202508

REACTIONS (3)
  - Dermatitis bullous [Recovering/Resolving]
  - Overdose [Recovering/Resolving]
  - Pustule [Recovering/Resolving]

NARRATIVE: CASE EVENT DATE: 20250801
